FAERS Safety Report 5193926-5 (Version None)
Quarter: 2006Q4

REPORT INFORMATION
  Report Type: 
  Country: None (occurrence: None)
  Receive Date: 20061228
  Receipt Date: 20061222
  Transmission Date: 20070319
  Serious: Yes (Hospitalization)
  Sender: FDA-Public Use
  Company Number: 2006AP06183

PATIENT
  Age: 53 Year
  Sex: Male

DRUGS (4)
  1. CASODEX [Suspect]
     Indication: PROSTATE CANCER
     Route: 048
     Dates: start: 20030819, end: 20040304
  2. CASODEX [Suspect]
     Route: 048
     Dates: start: 20060927, end: 20061024
  3. CASODEX [Suspect]
     Route: 048
     Dates: start: 20061025, end: 20061122
  4. LEUPROLIDE ACETATE [Concomitant]
     Route: 058

REACTIONS (1)
  - HEPATIC FUNCTION ABNORMAL [None]
